FAERS Safety Report 4806266-8 (Version None)
Quarter: 2005Q4

REPORT INFORMATION
  Report Type: 
  Country: None (occurrence: None)
  Receive Date: 20051019
  Receipt Date: 20050929
  Transmission Date: 20060501
  Serious: Yes (Death, Life-Threatening)
  Sender: FDA-Public Use
  Company Number: USA0509109551

PATIENT
  Age: 67 Year
  Sex: Male
  Weight: 99 kg

DRUGS (3)
  1. ZYPREXA [Suspect]
     Indication: PARANOIA
     Dates: start: 20010101
  2. PAXIL [Concomitant]
  3. LANOXIN [Concomitant]

REACTIONS (3)
  - CARDIAC ARREST [None]
  - FALL [None]
  - MYOCARDIAL INFARCTION [None]
